FAERS Safety Report 17461450 (Version 1)
Quarter: 2020Q1

REPORT INFORMATION
  Report Type: Spontaneous
  Country: US (occurrence: US)
  Receive Date: 20200226
  Receipt Date: 20200226
  Transmission Date: 20200409
  Serious: Yes (Other)
  Sender: FDA-Public Use
  Company Number: None

PATIENT
  Age: 66 Year
  Sex: Male
  Weight: 76.3 kg

DRUGS (1)
  1. LENALIDOMIDE [Suspect]
     Active Substance: LENALIDOMIDE
     Indication: PLASMA CELL MYELOMA
     Route: 048
     Dates: start: 20150615, end: 20160711

REACTIONS (4)
  - Inguinal hernia [None]
  - Adenoma benign [None]
  - Adenocarcinoma [None]
  - Rectal polyp [None]

NARRATIVE: CASE EVENT DATE: 20180912
